FAERS Safety Report 13608123 (Version 2)
Quarter: 2018Q2

REPORT INFORMATION
  Report Type: Spontaneous
  Country: MY (occurrence: AU)
  Receive Date: 20170602
  Receipt Date: 20180405
  Transmission Date: 20180711
  Serious: Yes (Other)
  Sender: FDA-Public Use
  Company Number: MY-ASTELLAS-2017US021018

PATIENT
  Age: 66 Year
  Sex: Male

DRUGS (7)
  1. TACROLIMUS. [Suspect]
     Active Substance: TACROLIMUS
     Indication: IMMUNOSUPPRESSANT DRUG THERAPY
     Dosage: UNK UNK, UNKNOWN FREQ.
     Route: 065
  2. SULFAMETHOXAZOLE AND TRIMETHOPRIM [Suspect]
     Active Substance: SULFAMETHOXAZOLE\TRIMETHOPRIM
     Indication: ANTIFUNGAL PROPHYLAXIS
  3. ATORVASTATIN [Suspect]
     Active Substance: ATORVASTATIN
     Indication: PHOTOSENSITIVITY REACTION
     Dosage: UNK UNK, UNKNOWN FREQ.
     Route: 065
  4. VORICONAZOLE. [Suspect]
     Active Substance: VORICONAZOLE
     Indication: PROPHYLAXIS
     Route: 065
  5. AZATHIOPRINE. [Suspect]
     Active Substance: AZATHIOPRINE
     Indication: IMMUNOSUPPRESSANT DRUG THERAPY
     Dosage: UNK UNK, UNKNOWN FREQ.
     Route: 065
  6. PREDNISOLONE. [Suspect]
     Active Substance: PREDNISOLONE
     Indication: IMMUNOSUPPRESSANT DRUG THERAPY
     Dosage: UNK UNK, UNKNOWN FREQ.
     Route: 065
  7. SULFAMETHOXAZOLE AND TRIMETHOPRIM [Suspect]
     Active Substance: SULFAMETHOXAZOLE\TRIMETHOPRIM
     Indication: PHOTOSENSITIVITY REACTION
     Dosage: UNK UNK, UNKNOWN FREQ.
     Route: 065

REACTIONS (3)
  - Actinic keratosis [Recovered/Resolved]
  - Bowen^s disease [Recovered/Resolved]
  - Squamous cell carcinoma of skin [Recovered/Resolved]
